FAERS Safety Report 6010262-5 (Version None)
Quarter: 2008Q4

REPORT INFORMATION
  Report Type: 
  Country: None (occurrence: None)
  Receive Date: 20081218
  Receipt Date: 20080314
  Transmission Date: 20090506
  Serious: No
  Sender: FDA-Public Use
  Company Number: A0715535A

PATIENT
  Age: 37 Year
  Sex: Male

DRUGS (3)
  1. FLUTICASONE PROPIONATE [Suspect]
     Indication: MULTIPLE ALLERGIES
     Dosage: 2SPR PER DAY
     Route: 045
     Dates: start: 20040101
  2. ALLEGRA [Concomitant]
  3. IBUPROFEN [Concomitant]

REACTIONS (9)
  - CONJUNCTIVITIS [None]
  - COUGH [None]
  - INTRAOCULAR PRESSURE INCREASED [None]
  - ORAL HERPES [None]
  - OROPHARYNGEAL PAIN [None]
  - PRODUCT QUALITY ISSUE [None]
  - RESPIRATORY TRACT INFECTION VIRAL [None]
  - RHINORRHOEA [None]
  - VISION BLURRED [None]
